FAERS Safety Report 6579906-3 (Version None)
Quarter: 2010Q1

REPORT INFORMATION
  Report Type: 
  Country: None (occurrence: None)
  Receive Date: 20100212
  Receipt Date: 20100204
  Transmission Date: 20100710
  Serious: Yes (Hospitalization)
  Sender: FDA-Public Use
  Company Number: GXKR2010TR01522

PATIENT
  Age: 51 Year
  Sex: Female

DRUGS (3)
  1. DICLOFENAC SODIUM [Suspect]
     Indication: BACK PAIN
     Dosage: 10 DF, UNK
     Route: 030
  2. TENOXICAM (NGX) [Suspect]
     Indication: BACK PAIN
     Dosage: 10 DF, UNK
  3. THIOCOLCHICOSIDE [Concomitant]
     Indication: BACK PAIN

REACTIONS (6)
  - EXTRADURAL ABSCESS [None]
  - GAIT DISTURBANCE [None]
  - PAIN IN EXTREMITY [None]
  - PYREXIA [None]
  - SPINAL LAMINECTOMY [None]
  - STAPHYLOCOCCAL ABSCESS [None]
